FAERS Safety Report 8034305 (Version 3)
Quarter: 2014Q1

REPORT INFORMATION
  Report Type: Spontaneous
  Country: US (occurrence: US)
  Receive Date: 20110714
  Receipt Date: 20140221
  Transmission Date: 20141002
  Serious: Yes (Other)
  Sender: FDA-Public Use
  Company Number: US-RANBAXY-2011US-45879

PATIENT
  Age: 10 Year
  Sex: Male

DRUGS (2)
  1. ISOTRETINOIN [Suspect]
     Indication: ICHTHYOSIS
     Dosage: 30 MG/DAY
     Route: 048
  2. FLUCONAZOLE [Concomitant]
     Indication: TINEA PEDIS
     Route: 048

REACTIONS (2)
  - Exostosis [Recovered/Resolved]
  - Off label use [Unknown]
